FAERS Safety Report 5137668-0 (Version None)
Quarter: 2006Q4

REPORT INFORMATION
  Report Type: 
  Country: None (occurrence: None)
  Receive Date: 20061030
  Receipt Date: 20051213
  Transmission Date: 20070319
  Serious: No
  Sender: FDA-Public Use
  Company Number: US-GLAXOSMITHKLINE-A0585673A

PATIENT
  Age: 50 Year
  Sex: Female
  Weight: 52.3 kg

DRUGS (8)
  1. ADVAIR HFA [Suspect]
     Indication: ASTHMA
     Dosage: 1PUFF TWICE PER DAY
     Route: 055
     Dates: start: 20010101
  2. SINGULAIR [Concomitant]
  3. ZYRTEC [Concomitant]
  4. RHINOCORT [Concomitant]
  5. NEBULIZER [Concomitant]
  6. AMPHOTERICIN B [Concomitant]
  7. ALBUTEROL [Concomitant]
  8. MEDROL [Concomitant]

REACTIONS (2)
  - ANXIETY [None]
  - DRUG INEFFECTIVE [None]
